FAERS Safety Report 8579153-X (Version None)
Quarter: 2012Q3

REPORT INFORMATION
  Report Type: 
  Country: None (occurrence: None)
  Receive Date: 20120808
  Receipt Date: 20120725
  Transmission Date: 20120928
  Serious: Yes (Hospitalization)
  Sender: FDA-Public Use
  Company Number: GB-ROCHE-1088325

PATIENT
  Sex: Female
  Weight: 88 kg

DRUGS (3)
  1. PACLITAXEL [Suspect]
     Indication: BREAST CANCER
     Dosage: DATE OF LAST DOSE PRIOR TO SAE 02/JUL/2012
     Route: 042
     Dates: start: 20120516, end: 20120724
  2. HERCEPTIN [Suspect]
     Indication: BREAST CANCER
     Dosage: DATE OF LAST DOSE PRIOR TO SAE 02/JUL/2012
     Route: 042
     Dates: start: 20120515, end: 20120724
  3. PERTUZUMAB [Suspect]
     Indication: BREAST CANCER
     Dosage: DATE OF LAST DOSE PRIOR TO SAE 25/JUN/2012
     Route: 042
     Dates: start: 20120515, end: 20120724

REACTIONS (1)
  - PNEUMONITIS [None]
